FAERS Safety Report 4989387-9 (Version None)
Quarter: 2006Q2

REPORT INFORMATION
  Report Type: 
  Country: None (occurrence: None)
  Receive Date: 20060425
  Receipt Date: 20060414
  Transmission Date: 20061013
  Serious: Yes (Other)
  Sender: FDA-Public Use
  Company Number: 2006051521

PATIENT
  Age: 33 Year
  Sex: Female
  Weight: 86.1834 kg

DRUGS (3)
  1. XANAX [Suspect]
     Indication: BIPOLAR DISORDER
     Dosage: UP TO 4 TIMES (0.25 MG,D), ORAL
     Route: 048
     Dates: start: 19810101
  2. XANAX [Suspect]
     Indication: DIABETES MELLITUS
     Dosage: UP TO 4 TIMES (0.25 MG,D), ORAL
     Route: 048
     Dates: start: 19810101
  3. LITHOBID [Concomitant]

REACTIONS (16)
  - ATROPHY [None]
  - BLOOD CHOLESTEROL INCREASED [None]
  - CARPAL TUNNEL SYNDROME [None]
  - COELIAC DISEASE [None]
  - DIABETES MELLITUS [None]
  - DYSTONIA [None]
  - FALL [None]
  - FIBROMYALGIA [None]
  - HYPERTENSION [None]
  - OSTEOARTHRITIS [None]
  - PAIN [None]
  - PARKINSON'S DISEASE [None]
  - POST POLIO SYNDROME [None]
  - RESTLESS LEGS SYNDROME [None]
  - SLEEP APNOEA SYNDROME [None]
  - THYROID DISORDER [None]
